FAERS Safety Report 6505691-7 (Version None)
Quarter: 2009Q4

REPORT INFORMATION
  Report Type: 
  Country: None (occurrence: None)
  Receive Date: 20091218
  Receipt Date: 20091207
  Transmission Date: 20100525
  Serious: Yes (Other)
  Sender: FDA-Public Use
  Company Number: B0600219A

PATIENT
  Age: 41 Year
  Sex: Female

DRUGS (1)
  1. RELENZA [Suspect]
     Indication: DRUG USE FOR UNKNOWN INDICATION
     Route: 055

REACTIONS (2)
  - DYSGEUSIA [None]
  - PAROSMIA [None]
